FAERS Safety Report 12357838 (Version 1)
Quarter: 2016Q2

REPORT INFORMATION
  Report Type: Spontaneous
  Country: US (occurrence: US)
  Receive Date: 20160512
  Receipt Date: 20160512
  Transmission Date: 20160815
  Serious: No
  Sender: FDA-Public Use
  Company Number: US-ASPEN PHARMA TRADING LIMITED US-AG-2014-005593

PATIENT
  Age: 70 Year
  Sex: Male

DRUGS (1)
  1. LEUKERAN [Suspect]
     Active Substance: CHLORAMBUCIL
     Indication: PRODUCT USED FOR UNKNOWN INDICATION
     Route: 065
     Dates: start: 20140827, end: 20140829

REACTIONS (2)
  - Drug administration error [Unknown]
  - Incorrect product storage [Unknown]
